FAERS Safety Report 4815710-1 (Version None)
Quarter: 2005Q4

REPORT INFORMATION
  Report Type: 
  Country: None (occurrence: None)
  Receive Date: 20051027
  Receipt Date: 20051013
  Transmission Date: 20060501
  Serious: Yes (Death, Hospitalization, Disabling, Other)
  Sender: FDA-Public Use
  Company Number: 2005-01455

PATIENT
  Age: 50 Year
  Sex: Female
  Weight: 50 kg

DRUGS (1)
  1. VELCADE [Suspect]
     Indication: MULTIPLE MYELOMA
     Dosage: 2.00 MG, 2/WEEK, INTRAVENOUS
     Route: 042
     Dates: start: 20050405, end: 20050707

REACTIONS (12)
  - ASTHENIA [None]
  - BLOOD LACTATE DEHYDROGENASE INCREASED [None]
  - DISEASE PROGRESSION [None]
  - DRUG TOXICITY [None]
  - HYPOXIA [None]
  - INTERSTITIAL LUNG DISEASE [None]
  - MULTIPLE MYELOMA [None]
  - MULTIPLE SCLEROSIS [None]
  - NAUSEA [None]
  - PNEUMOCYSTIS JIROVECI PNEUMONIA [None]
  - PULMONARY FIBROSIS [None]
  - THROMBOCYTOPENIA [None]
